FAERS Safety Report 7400282-8 (Version None)
Quarter: 2011Q2

REPORT INFORMATION
  Report Type: 
  Country: None (occurrence: None)
  Receive Date: 20110405
  Receipt Date: 20110405
  Transmission Date: 20111010
  Serious: Yes (Other)
  Sender: FDA-Public Use
  Company Number: None

PATIENT
  Age: 18 Year
  Sex: Female
  Weight: 64.5 kg

DRUGS (1)
  1. LAMOTRIGINE [Suspect]
     Dosage: 25 MG HS PO
     Route: 048
     Dates: start: 20110316, end: 20110318

REACTIONS (2)
  - SKIN REACTION [None]
  - SKIN DISCOLOURATION [None]
